FAERS Safety Report 12574376 (Version 1)
Quarter: 2016Q3

REPORT INFORMATION
  Report Type: Spontaneous
  Country: US (occurrence: None)
  Receive Date: 20160719
  Receipt Date: 20160719
  Transmission Date: 20161109
  Serious: Yes (Hospitalization)
  Sender: FDA-Public Use
  Company Number: None

PATIENT
  Age: 77 Year
  Sex: Male
  Weight: 75.2 kg

DRUGS (3)
  1. METFORMIN HYDROCHLORIDE. [Suspect]
     Active Substance: METFORMIN HYDROCHLORIDE
     Dates: end: 20160627
  2. TAXOL [Suspect]
     Active Substance: PACLITAXEL
     Dates: end: 20160620
  3. CARBOPLATIN. [Suspect]
     Active Substance: CARBOPLATIN
     Dates: end: 20160620

REACTIONS (4)
  - Pulmonary embolism [None]
  - Radiation oesophagitis [None]
  - Sepsis [None]
  - Blood lactic acid increased [None]

NARRATIVE: CASE EVENT DATE: 20160627
